FAERS Safety Report 5646127-8 (Version None)
Quarter: 2008Q1

REPORT INFORMATION
  Report Type: 
  Country: None (occurrence: None)
  Receive Date: 20080229
  Receipt Date: 20080219
  Transmission Date: 20080703
  Serious: Yes (Hospitalization)
  Sender: FDA-Public Use
  Company Number: JP-PFIZER INC-2008016757

PATIENT
  Age: 63 Year
  Sex: Male

DRUGS (7)
  1. LIPITOR [Suspect]
     Indication: LIPIDS ABNORMAL
     Dosage: DAILY DOSE:10MG-FREQ:DAILY
     Route: 048
  2. GARENOXACIN MESYLATE [Suspect]
     Indication: PHARYNGITIS
     Dosage: DAILY DOSE:400MG-FREQ:DAILY
     Route: 048
  3. EMPYNASE [Concomitant]
     Dosage: TEXT:27000 DOSE FORM DAILY
     Route: 048
  4. MUCODYNE [Concomitant]
     Dosage: DAILY DOSE:1500MG-FREQ:DAILY
     Route: 048
  5. BAYNAS [Concomitant]
     Dosage: DAILY DOSE:150MG-FREQ:DAILY
     Route: 048
  6. BLADDERON [Concomitant]
     Dosage: DAILY DOSE:600MG-FREQ:DAILY
     Route: 048
  7. CEFZON [Concomitant]
     Dosage: DAILY DOSE:300MG-FREQ:DAILY
     Route: 048

REACTIONS (1)
  - LIVER DISORDER [None]
